FAERS Safety Report 21825649 (Version 2)
Quarter: 2023Q1

REPORT INFORMATION
  Report Type: Spontaneous
  Country: US (occurrence: US)
  Receive Date: 20230105
  Receipt Date: 20230216
  Transmission Date: 20230417
  Serious: No
  Sender: FDA-Public Use
  Company Number: US-BAXTER-2022BAX030593

PATIENT

DRUGS (2)
  1. NOREPINEPHRINE BITARTRATE [Suspect]
     Active Substance: NOREPINEPHRINE BITARTRATE
     Dosage: 4MG/250ML (16 MCG/ML) IN VIAFLO PLASTIC CONTAINER, LIQUID PREMIX (NOT ADMINISTERED)
     Route: 065
  2. NICARDIPINE HYDROCHLORIDE [Suspect]
     Active Substance: NICARDIPINE HYDROCHLORIDE
     Dosage: UNK
     Route: 065

REACTIONS (3)
  - Product label confusion [Unknown]
  - Wrong product administered [Unknown]
  - No adverse event [Unknown]
